FAERS Safety Report 5653030-6 (Version None)
Quarter: 2008Q1

REPORT INFORMATION
  Report Type: 
  Country: None (occurrence: None)
  Receive Date: 20080306
  Receipt Date: 20080227
  Transmission Date: 20080703
  Serious: Yes (Hospitalization)
  Sender: FDA-Public Use
  Company Number: PHHY2008JP01166

PATIENT
  Age: 56 Year

DRUGS (2)
  1. CYCLOSPORINE [Suspect]
     Indication: PSORIASIS
     Route: 048
  2. CYCLOSPORINE [Suspect]
     Dosage: UNK, UNK
     Route: 048
     Dates: start: 19950101

REACTIONS (3)
  - FOCAL GLOMERULOSCLEROSIS [None]
  - NEPHRITIS INTERSTITIAL [None]
  - PROTEINURIA [None]
